FAERS Safety Report 5463200-8 (Version None)
Quarter: 2007Q3

REPORT INFORMATION
  Report Type: 
  Country: None (occurrence: None)
  Receive Date: 20070920
  Receipt Date: 20070917
  Transmission Date: 20080115
  Serious: Yes (Death)
  Sender: FDA-Public Use
  Company Number: A0683059A

PATIENT
  Sex: Male

DRUGS (2)
  1. AVANDIA [Suspect]
     Route: 048
     Dates: end: 20070901
  2. DIABETES MEDICATION [Concomitant]
     Route: 065

REACTIONS (1)
  - CARDIOVASCULAR DISORDER [None]
